FAERS Safety Report 20090468 (Version 1)
Quarter: 2021Q4

REPORT INFORMATION
  Report Type: Spontaneous
  Country: JP (occurrence: JP)
  Receive Date: 20211119
  Receipt Date: 20211119
  Transmission Date: 20220304
  Serious: Yes (Hospitalization, Other)
  Sender: FDA-Public Use
  Company Number: JP-MYLANLABS-2021M1084739

PATIENT
  Age: 37 Year
  Sex: Male

DRUGS (4)
  1. TORSEMIDE [Suspect]
     Active Substance: TORSEMIDE
     Indication: Cardiac failure
     Dosage: 4 MILLIGRAM, QD
     Route: 048
  2. VYNDAQEL [Suspect]
     Active Substance: TAFAMIDIS MEGLUMINE
     Indication: Cardiac amyloidosis
     Dosage: 80 MILLIGRAM, QD
     Dates: start: 20210817, end: 20210821
  3. SPIRONOLACTONE [Suspect]
     Active Substance: SPIRONOLACTONE
     Indication: Cardiac failure
     Dosage: 25 MILLIGRAM, ONCE
     Route: 048
  4. BELSOMRA [Concomitant]
     Active Substance: SUVOREXANT
     Indication: Insomnia
     Dosage: UNK

REACTIONS (5)
  - Cholecystitis [Unknown]
  - Biliary obstruction [Recovered/Resolved]
  - Liver disorder [Not Recovered/Not Resolved]
  - Hepatic function abnormal [Not Recovered/Not Resolved]
  - Nausea [Not Recovered/Not Resolved]
